FAERS Safety Report 17318353 (Version 1)
Quarter: 2020Q1

REPORT INFORMATION
  Report Type: Spontaneous
  Country: US (occurrence: US)
  Receive Date: 20200124
  Receipt Date: 20200124
  Transmission Date: 20200409
  Serious: Yes (Other)
  Sender: FDA-Public Use
  Company Number: US-REGENERON PHARMACEUTICALS, INC.-2020-13743

PATIENT

DRUGS (2)
  1. EYLEA [Suspect]
     Active Substance: AFLIBERCEPT
     Indication: NEOVASCULAR AGE-RELATED MACULAR DEGENERATION
     Dosage: UNK
     Route: 031
  2. EYLEA [Suspect]
     Active Substance: AFLIBERCEPT
     Dosage: UNK
     Route: 031
     Dates: start: 201912, end: 201912

REACTIONS (4)
  - Viral infection [Recovered/Resolved]
  - Product dose omission [Unknown]
  - Photophobia [Recovering/Resolving]
  - Visual perseveration [Not Recovered/Not Resolved]
